FAERS Safety Report 25726967 (Version 1)
Quarter: 2025Q3

REPORT INFORMATION
  Report Type: Spontaneous
  Country: US (occurrence: None)
  Receive Date: 20250825
  Receipt Date: 20250825
  Transmission Date: 20251021
  Serious: Yes (Hospitalization)
  Sender: FDA-CTU
  Company Number: None

PATIENT
  Sex: Male

DRUGS (2)
  1. VANCOMYCIN [Suspect]
     Active Substance: VANCOMYCIN
  2. CALCIUM GLUCONATE [Suspect]
     Active Substance: CALCIUM GLUCONATE

REACTIONS (4)
  - Injection site extravasation [None]
  - Injection site swelling [None]
  - Injection site pain [None]
  - Injection site coldness [None]

NARRATIVE: CASE EVENT DATE: 20220510
